FAERS Safety Report 7882497 (Version 3)
Quarter: 2012Q4

REPORT INFORMATION
  Report Type: 
  Country: GR (occurrence: GR)
  Receive Date: 20110401
  Receipt Date: 20121128
  Transmission Date: 20130627
  Serious: Yes (Death, Hospitalization)
  Sender: FDA-Public Use
  Company Number: GR-AMGEN-GRCSP2011016805

PATIENT
  Age: 80 Year
  Sex: Male

DRUGS (3)
  1. PROLIA [Suspect]
     Indication: OSTEITIS DEFORMANS
     Dosage: UNK
     Dates: start: 201102
  2. PROLIA [Suspect]
     Indication: PATHOLOGICAL FRACTURE
  3. ONE ALPHA [Concomitant]
     Dosage: UNK

REACTIONS (4)
  - Death [Fatal]
  - Hypocalcaemia [Recovered/Resolved]
  - Altered state of consciousness [Unknown]
  - Urinary tract infection [Unknown]
